FAERS Safety Report 8903272 (Version 2)
Quarter: 2012Q4

REPORT INFORMATION
  Report Type: 
  Country: PE (occurrence: PE)
  Receive Date: 20121113
  Receipt Date: 20121119
  Transmission Date: 20130627
  Serious: Yes (Death, Hospitalization)
  Sender: FDA-Public Use
  Company Number: PE-PFIZER INC-2012281374

PATIENT
  Age: 92 Year
  Sex: Female

DRUGS (6)
  1. LIPITOR [Suspect]
     Indication: DYSLIPIDAEMIA
     Dosage: UNK
     Route: 048
     Dates: start: 20110329, end: 20111221
  2. RYTMONORM [Concomitant]
     Indication: CARDIAC INSUFFICIENCY
     Dosage: UNK
     Route: 048
     Dates: end: 20111221
  3. ATACAND [Concomitant]
     Indication: CARDIAC INSUFFICIENCY
     Dosage: UNK
     Route: 048
     Dates: end: 20111221
  4. PLAVIX [Concomitant]
     Indication: CARDIAC INSUFFICIENCY
     Dosage: UNK
     Route: 048
     Dates: end: 20111221
  5. DIGOXIN [Concomitant]
     Indication: CARDIAC INSUFFICIENCY
     Dosage: UNK
     Route: 048
     Dates: end: 20111221
  6. ALPRAZOLAM [Concomitant]
     Indication: CARDIAC INSUFFICIENCY
     Dosage: UNK
     Route: 048
     Dates: end: 20111221

REACTIONS (2)
  - Pneumonia [Fatal]
  - Cerebrovascular accident [Not Recovered/Not Resolved]
